FAERS Safety Report 8147137 (Version 8)
Quarter: 2013Q1

REPORT INFORMATION
  Report Type: Spontaneous
  Country: US (occurrence: US)
  Receive Date: 20110922
  Receipt Date: 20130123
  Transmission Date: 20140127
  Serious: No
  Sender: FDA-Public Use
  Company Number: US-BIOGENIDEC-2011BI035491

PATIENT
  Age: 38 Year
  Sex: Female

DRUGS (4)
  1. TYSABRI [Suspect]
     Indication: MULTIPLE SCLEROSIS
     Route: 042
     Dates: start: 20110805
  2. AVONEX [Concomitant]
     Indication: MULTIPLE SCLEROSIS
     Route: 030
     Dates: start: 19991101
  3. AVONEX [Concomitant]
     Indication: MULTIPLE SCLEROSIS
     Route: 030
     Dates: start: 20030201
  4. BENADRYL [Concomitant]
     Indication: PREMEDICATION

REACTIONS (14)
  - Anxiety [Recovered/Resolved]
  - Dyspnoea [Recovered/Resolved]
  - Urticaria [Recovered/Resolved]
  - Blood pressure increased [Recovered/Resolved]
  - Tremor [Recovered/Resolved]
  - Cough [Recovered/Resolved]
  - Food allergy [Unknown]
  - Pain [Not Recovered/Not Resolved]
  - Pain in extremity [Not Recovered/Not Resolved]
  - Choking [Recovered/Resolved]
  - Headache [Recovered/Resolved]
  - Malaise [Recovered/Resolved]
  - Flushing [Recovered/Resolved]
  - Rash [Not Recovered/Not Resolved]
